FAERS Safety Report 6692511-3 (Version None)
Quarter: 2010Q2

REPORT INFORMATION
  Report Type: 
  Country: None (occurrence: None)
  Receive Date: 20100422
  Receipt Date: 20100413
  Transmission Date: 20101027
  Serious: Yes (Other)
  Sender: FDA-Public Use
  Company Number: B0647601A

PATIENT
  Age: 66 Year
  Sex: Male

DRUGS (3)
  1. ZOVIRAX [Suspect]
     Indication: GENITAL HERPES
     Dosage: 400MG TWICE PER DAY
     Route: 048
  2. APROVEL [Suspect]
     Indication: HYPERTENSION
     Route: 065
  3. FLECAINIDE ACETATE [Suspect]
     Indication: ATRIAL FIBRILLATION
     Route: 065

REACTIONS (2)
  - DYSPNOEA EXERTIONAL [None]
  - INTERSTITIAL LUNG DISEASE [None]
